FAERS Safety Report 7371584-9 (Version None)
Quarter: 2011Q1

REPORT INFORMATION
  Report Type: 
  Country: None (occurrence: None)
  Receive Date: 20110324
  Receipt Date: 20101007
  Transmission Date: 20110831
  Serious: Yes (Other)
  Sender: FDA-Public Use
  Company Number: US-BAYER-201019107NA

PATIENT
  Sex: Female
  Weight: 68.182 kg

DRUGS (11)
  1. PROMETHAZINE [Concomitant]
     Indication: VOMITING
     Dosage: 25 MG, UNK
     Route: 054
     Dates: start: 20080501
  2. OCELLA [Suspect]
     Route: 048
     Dates: start: 20080501, end: 20090901
  3. YAZ [Suspect]
     Route: 048
     Dates: start: 20080101, end: 20081101
  4. FLUOCINONIDE [Concomitant]
     Dates: start: 20081201
  5. MULTI-VITAMINS [Concomitant]
  6. YASMIN [Suspect]
     Route: 048
     Dates: start: 20080301, end: 20080501
  7. CENTRUM [Concomitant]
  8. TAMIFLU [Concomitant]
     Dates: start: 20080301
  9. PREVACID [Concomitant]
  10. ONDANSETRON [Concomitant]
     Dates: start: 20080701
  11. PRENATAL [Concomitant]
     Dosage: UNK
     Dates: start: 20070301, end: 20071101

REACTIONS (10)
  - CHOLECYSTITIS CHRONIC [None]
  - ABDOMINAL PAIN UPPER [None]
  - VOMITING [None]
  - DIARRHOEA [None]
  - ABDOMINAL DISTENSION [None]
  - CHOLESTEROSIS [None]
  - CHOLELITHIASIS [None]
  - FAT INTOLERANCE [None]
  - CONSTIPATION [None]
  - NAUSEA [None]
